FAERS Safety Report 9559432 (Version 1)
Quarter: 2013Q3

REPORT INFORMATION
  Report Type: Spontaneous
  Country: US (occurrence: None)
  Receive Date: 20130925
  Receipt Date: 20130925
  Transmission Date: 20140515
  Serious: Yes (Other)
  Sender: FDA-Public Use
  Company Number: FK201304304

PATIENT
  Age: 22 Year
  Sex: Male

DRUGS (1)
  1. PROPOFOL (MANUFACTURER UNKNOWN ( (PROPOFOL) (PROPOFOL) [Suspect]
     Indication: CONVULSION
     Dosage: 6 MG/KG, 1 IN 1 HR, INTRAVENOUS DRIP)?
     Route: 041

REACTIONS (6)
  - Electrocardiogram QT prolonged [None]
  - Torsade de pointes [None]
  - Electrocardiogram ST segment elevation [None]
  - Myocardial ischaemia [None]
  - Myocardial infarction [None]
  - Electrocardiogram abnormal [None]
